FAERS Safety Report 5973852-1 (Version None)
Quarter: 2008Q4

REPORT INFORMATION
  Report Type: 
  Country: None (occurrence: None)
  Receive Date: 20081201
  Receipt Date: 20081119
  Transmission Date: 20090506
  Serious: Yes (Death)
  Sender: FDA-Public Use
  Company Number: PE-ROCHE-598212

PATIENT
  Sex: Male
  Weight: 50 kg

DRUGS (4)
  1. CAPECITABINE [Suspect]
     Indication: GASTRIC CANCER
     Dosage: 1000 MG/M2 (I.E. TOTAL DAILY DOSE 2000 MG/M2) TWICE DAILY FOR 14 DAYS EVERY 3 WEEKS
     Route: 048
     Dates: start: 20081113, end: 20081114
  2. PLACEBO [Suspect]
     Indication: GASTRIC CANCER
     Route: 042
     Dates: start: 20081113, end: 20081113
  3. CISPLATIN [Suspect]
     Indication: GASTRIC CANCER
     Route: 042
     Dates: start: 20081113, end: 20081114
  4. OXYCODONE HCL [Concomitant]
     Dates: start: 20081113, end: 20081113

REACTIONS (1)
  - DEATH [None]
